FAERS Safety Report 5295268-6 (Version None)
Quarter: 2007Q2

REPORT INFORMATION
  Report Type: 
  Country: None (occurrence: None)
  Receive Date: 20070412
  Receipt Date: 20070409
  Transmission Date: 20071010
  Serious: Yes (Life-Threatening, Hospitalization)
  Sender: FDA-Public Use
  Company Number: US-ELI_LILLY_AND_COMPANY-US200604001445

PATIENT
  Sex: Female

DRUGS (3)
  1. CYMBALTA [Suspect]
     Indication: NEUROPATHY
     Dosage: 60 MG, DAILY (1/D)
     Dates: end: 20060401
  2. TYLENOL                                 /USA/ [Concomitant]
  3. LORTAB [Concomitant]
     Indication: PAIN

REACTIONS (1)
  - HEPATITIS [None]
